FAERS Safety Report 10087956 (Version 5)
Quarter: 2014Q2

REPORT INFORMATION
  Report Type: Report from Study
  Country: US (occurrence: US)
  Receive Date: 20140416
  Receipt Date: 20140611
  Transmission Date: 20141212
  Serious: Yes (Hospitalization, Other)
  Sender: FDA-Public Use
  Company Number: US-ALEXION PHARMACEUTICALS INC.-A201401363

PATIENT
  Sex: 0

DRUGS (4)
  1. SOLIRIS [Suspect]
     Indication: HAEMOLYTIC URAEMIC SYNDROME
     Dosage: 900 MG, QW
     Route: 042
     Dates: start: 20140328
  2. SOLIRIS [Suspect]
     Dosage: 1200 MG, QW
     Route: 042
  3. SOLIRIS [Suspect]
     Dosage: 1200 MG, Q2W
     Route: 042
     Dates: start: 20140328
  4. RITUXIMAB [Concomitant]
     Indication: PRODUCT USED FOR UNKNOWN INDICATION
     Dosage: 1 G, UNK
     Route: 065
     Dates: start: 20140426, end: 20140426

REACTIONS (6)
  - Histiocytosis haematophagic [Unknown]
  - Retinal haemorrhage [Unknown]
  - Retinal oedema [Unknown]
  - Blindness [Unknown]
  - Peripheral coldness [Unknown]
  - Vein collapse [Unknown]
